FAERS Safety Report 24910842 (Version 1)
Quarter: 2025Q1

REPORT INFORMATION
  Report Type: Spontaneous
  Country: US (occurrence: None)
  Receive Date: 20250131
  Receipt Date: 20250131
  Transmission Date: 20250408
  Serious: Yes (Hospitalization, Other)
  Sender: FDA-CTU
  Company Number: None

PATIENT
  Age: 70 Year
  Sex: Male

DRUGS (1)
  1. TORADOL [Suspect]
     Active Substance: KETOROLAC TROMETHAMINE

REACTIONS (8)
  - Dysgeusia [None]
  - Dizziness [None]
  - Urticaria [None]
  - Thinking abnormal [None]
  - Photopsia [None]
  - Visual impairment [None]
  - Arthralgia [None]
  - Skin irritation [None]

NARRATIVE: CASE EVENT DATE: 20230817
